FAERS Safety Report 5378216-X (Version None)
Quarter: 2007Q3

REPORT INFORMATION
  Report Type: 
  Country: None (occurrence: None)
  Receive Date: 20070705
  Receipt Date: 20070626
  Transmission Date: 20080115
  Serious: Yes (Other)
  Sender: FDA-Public Use
  Company Number: SE-JNJFOC-20070606275

PATIENT
  Age: 29 Year
  Sex: Male

DRUGS (4)
  1. CONCERTA [Suspect]
     Indication: DRUG USE FOR UNKNOWN INDICATION
     Route: 048
  2. NITRAZEPAM [Concomitant]
  3. ZOLOFT [Concomitant]
  4. PROPAVAN [Concomitant]

REACTIONS (1)
  - HYPERTENSION [None]
